FAERS Safety Report 7823671-6 (Version None)
Quarter: 2011Q4

REPORT INFORMATION
  Report Type: 
  Country: None (occurrence: None)
  Receive Date: 20111019
  Receipt Date: 20111019
  Transmission Date: 20120403
  Serious: Yes (Other)
  Sender: FDA-Public Use
  Company Number: None

PATIENT
  Age: 41 Year
  Sex: Female
  Weight: 77.11 kg

DRUGS (1)
  1. CYMBALTA [Suspect]
     Indication: DEPRESSION
     Dosage: 1
     Route: 048
     Dates: start: 20110604, end: 20111018

REACTIONS (10)
  - WRONG TECHNIQUE IN DRUG USAGE PROCESS [None]
  - NIGHTMARE [None]
  - ABNORMAL DREAMS [None]
  - WITHDRAWAL SYNDROME [None]
  - DIZZINESS [None]
  - PRODUCT QUALITY ISSUE [None]
  - VISUAL IMPAIRMENT [None]
  - NIGHT SWEATS [None]
  - FEELING ABNORMAL [None]
  - PHOTOPHOBIA [None]
